FAERS Safety Report 5354583-8 (Version None)
Quarter: 2007Q2

REPORT INFORMATION
  Report Type: 
  Country: None (occurrence: None)
  Receive Date: 20070611
  Receipt Date: 20070602
  Transmission Date: 20071010
  Serious: Yes (Death, Hospitalization)
  Sender: FDA-Public Use
  Company Number: 2007SP004761

PATIENT
  Age: 47 Year
  Sex: Female
  Weight: 52 kg

DRUGS (4)
  1. PEG-INTRON [Suspect]
     Indication: HEPATITIS C
     Dosage: SEE IMAGE
     Route: 058
     Dates: start: 20070123, end: 20070227
  2. PEG-INTRON [Suspect]
     Indication: HEPATITIS C
     Dosage: SEE IMAGE
     Route: 058
     Dates: start: 20061227
  3. REBETOL [Suspect]
     Indication: HEPATITIS C
     Dosage: 600 MG; PO
     Route: 048
     Dates: start: 20061227
  4. MYONAL [Concomitant]

REACTIONS (4)
  - CARDIO-RESPIRATORY ARREST [None]
  - CEREBRAL HAEMORRHAGE [None]
  - PLATELET COUNT DECREASED [None]
  - PYREXIA [None]
